FAERS Safety Report 8396911-5 (Version None)
Quarter: 2012Q2

REPORT INFORMATION
  Report Type: 
  Country: None (occurrence: None)
  Receive Date: 20120530
  Receipt Date: 20120514
  Transmission Date: 20120825
  Serious: No
  Sender: FDA-Public Use
  Company Number: US-ASTRAZENECA-2012SE31081

PATIENT
  Age: 65 Year
  Sex: Female

DRUGS (1)
  1. CRESTOR [Suspect]
     Route: 048

REACTIONS (5)
  - MULTIPLE ALLERGIES [None]
  - CYSTITIS [None]
  - EYE DISORDER [None]
  - URINARY TRACT INFECTION [None]
  - SINUSITIS [None]
